FAERS Safety Report 7521219-7 (Version None)
Quarter: 2011Q2

REPORT INFORMATION
  Report Type: 
  Country: None (occurrence: None)
  Receive Date: 20110603
  Receipt Date: 20101203
  Transmission Date: 20111010
  Serious: Yes (Hospitalization, Other)
  Sender: FDA-Public Use
  Company Number: NL-BAYER-2010-000863

PATIENT
  Age: 56 Year
  Sex: Female
  Weight: 55 kg

DRUGS (10)
  1. FENTANYL [Concomitant]
     Dosage: DAILY DOSE 100 NOT APPL.
     Dates: start: 20101129
  2. X-PREP [Concomitant]
     Indication: CONSTIPATION
     Dosage: DAILY DOSE 60 ML
     Dates: start: 20101111, end: 20101128
  3. SORAFENIB (RAF KINASE INHIBITOR) [Suspect]
     Indication: NON-SMALL CELL LUNG CANCER STAGE IV
     Dosage: 400 MG, BID
     Route: 048
     Dates: start: 20101115, end: 20101202
  4. FENTANYL [Concomitant]
     Dosage: DAILY DOSE 150 NOT APPL.
     Dates: start: 20101111, end: 20101112
  5. FRAXODI [Concomitant]
     Indication: PULMONARY EMBOLISM
     Dosage: DAILY DOSE .6 NOT APPL.
     Dates: start: 20100401
  6. MELOXICAM [Concomitant]
     Indication: PAIN
     Dosage: DAILY DOSE 15 NG
     Dates: start: 20100920, end: 20101004
  7. ACETAMINOPHEN [Concomitant]
     Indication: PAIN
     Dosage: DAILY DOSE 3000 MG
     Dates: start: 20101004, end: 20101101
  8. FENTANYL [Concomitant]
     Indication: PAIN
     Dosage: DAILY DOSE 150 NOT APPL.
     Dates: start: 20011221, end: 20101129
  9. MOVICOLON [Concomitant]
     Indication: CONSTIPATION
     Dosage: 1-2 DD
     Dates: start: 20101004, end: 20101111
  10. OXYCODONE HCL [Concomitant]
     Indication: PAIN
     Dosage: UNK
     Dates: start: 20101002, end: 20101116

REACTIONS (4)
  - ABDOMINAL PAIN [None]
  - VOMITING [None]
  - HEPATIC FUNCTION ABNORMAL [None]
  - NAUSEA [None]
